FAERS Safety Report 9593464 (Version 1)
Quarter: 2013Q3

REPORT INFORMATION
  Report Type: Spontaneous
  Country: US (occurrence: None)
  Receive Date: 20130930
  Receipt Date: 20130930
  Transmission Date: 20140515
  Serious: No
  Sender: FDA-Public Use
  Company Number: 1000045836

PATIENT
  Age: 65 Year
  Sex: Female

DRUGS (5)
  1. LINZESS [Suspect]
     Indication: CONSTIPATION
     Dosage: 1 IN 1 D
     Route: 048
     Dates: start: 201304, end: 201305
  2. MAGNESIUM CITRATE [Suspect]
     Dosage: 1 BOTTLE, 1 IN 1 D
     Route: 048
     Dates: start: 20130510, end: 20130510
  3. LITHOBID (LITHIUM CARBONATE) (LITHIUM CARBONATE) [Concomitant]
  4. SYNTHROID (LEVOTHYROXINE SODIUM) (LEVOTHYROXINE SODIUM) [Concomitant]
  5. ENALAPRIL (ENALAPRIL) (ENALAPRIL) [Concomitant]

REACTIONS (1)
  - Diarrhoea [None]
